FAERS Safety Report 6734985-5 (Version None)
Quarter: 2010Q2

REPORT INFORMATION
  Report Type: 
  Country: None (occurrence: None)
  Receive Date: 20100521
  Receipt Date: 20100510
  Transmission Date: 20101027
  Serious: Yes (Death)
  Sender: FDA-Public Use
  Company Number: CN-PFIZER INC-2010058829

PATIENT

DRUGS (3)
  1. ZOLOFT [Suspect]
     Indication: DEPRESSION
     Dosage: 50 MG, 2X/DAY
     Route: 048
     Dates: start: 20100427
  2. AMITRIPTYLINE [Suspect]
     Dosage: UNK
     Route: 048
     Dates: start: 20100427
  3. BACLOFEN [Suspect]
     Dosage: UNK
     Route: 048
     Dates: start: 20100427

REACTIONS (1)
  - DEATH [None]
